FAERS Safety Report 19466679 (Version 1)
Quarter: 2021Q2

REPORT INFORMATION
  Report Type: Other
  Country: IT (occurrence: IT)
  Receive Date: 20210628
  Receipt Date: 20210628
  Transmission Date: 20210717
  Serious: Yes (Other)
  Sender: FDA-Public Use
  Company Number: IT-CELLTRION INC.-2021IT008424

PATIENT

DRUGS (4)
  1. REMSIMA [Suspect]
     Active Substance: INFLIXIMAB
     Indication: COLITIS
     Dosage: 5 MG/KG, CYCLIC (DOSAGE FORM:POWDER FOR SOLUTION FOR INJECTION
     Route: 042
     Dates: start: 20170926, end: 20210319
  2. LUCEN [Concomitant]
     Active Substance: ESOMEPRAZOLE
     Dosage: 20 MG, QD
  3. DIBASE [Concomitant]
     Active Substance: CHOLECALCIFEROL
     Dosage: 50 K[IU]
  4. ASACOL [Concomitant]
     Active Substance: MESALAMINE
     Dosage: 3200 MG, QD

REACTIONS (3)
  - Angioedema [Recovered/Resolved]
  - Pruritus [Recovered/Resolved]
  - Erythema [Recovered/Resolved]

NARRATIVE: CASE EVENT DATE: 20210319
